FAERS Safety Report 10428386 (Version 5)
Quarter: 2016Q2

REPORT INFORMATION
  Report Type: Spontaneous
  Country: US (occurrence: US)
  Receive Date: 20140903
  Receipt Date: 20160624
  Transmission Date: 20160815
  Serious: Yes (Hospitalization, Other)
  Sender: FDA-Public Use
  Company Number: US-GLAXOSMITHKLINE-A1087263A

PATIENT
  Age: 76 Year
  Sex: Female

DRUGS (30)
  1. ADVAIR HFA [Suspect]
     Active Substance: FLUTICASONE PROPIONATE\SALMETEROL XINAFOATE
     Indication: ASTHMA
     Dosage: 2 PUFF(S), BID
     Route: 055
     Dates: start: 2013
  2. ADVAIR HFA [Suspect]
     Active Substance: FLUTICASONE PROPIONATE\SALMETEROL XINAFOATE
     Indication: ASTHMA
     Dosage: 115/21 MCG
     Route: 055
  3. METHOTREXATE [Concomitant]
     Active Substance: METHOTREXATE
  4. BABY ASPIRIN [Concomitant]
     Active Substance: ASPIRIN
  5. SIMVASTATIN. [Concomitant]
     Active Substance: SIMVASTATIN
  6. FISH OIL [Concomitant]
     Active Substance: FISH OIL
  7. GABAPENTIN. [Concomitant]
     Active Substance: GABAPENTIN
  8. ISOSORBIDE. [Concomitant]
     Active Substance: ISOSORBIDE
  9. ADVAIR HFA [Suspect]
     Active Substance: FLUTICASONE PROPIONATE\SALMETEROL XINAFOATE
     Dosage: 2 PUFF(S), BID
     Route: 055
  10. LYRICA [Concomitant]
     Active Substance: PREGABALIN
  11. OMEPRAZOLE. [Concomitant]
     Active Substance: OMEPRAZOLE
  12. PROAIR HFA [Concomitant]
     Active Substance: ALBUTEROL SULFATE
  13. CITALOPRAM [Concomitant]
     Active Substance: CITALOPRAM HYDROBROMIDE
  14. FOLIC ACID. [Concomitant]
     Active Substance: FOLIC ACID
  15. VITAMIN B12 [Concomitant]
     Active Substance: CYANOCOBALAMIN
  16. CALCIUM + VITAMIN D [Concomitant]
     Active Substance: CALCIUM\VITAMIN D
  17. FLUTICASONE [Concomitant]
     Active Substance: FLUTICASONE\FLUTICASONE PROPIONATE
  18. NORVASC [Concomitant]
     Active Substance: AMLODIPINE BESYLATE
  19. LORATADINE. [Concomitant]
     Active Substance: LORATADINE
  20. PRIMIDONE. [Concomitant]
     Active Substance: PRIMIDONE
  21. VITAMIN D (CALCIFEDIOL) [Concomitant]
  22. SERTRALINE [Concomitant]
     Active Substance: SERTRALINE HYDROCHLORIDE
  23. ADVAIR HFA [Suspect]
     Active Substance: FLUTICASONE PROPIONATE\SALMETEROL XINAFOATE
     Indication: CHRONIC OBSTRUCTIVE PULMONARY DISEASE
     Dosage: 2 PUFF(S), BID
     Route: 055
  24. PLAVIX [Suspect]
     Active Substance: CLOPIDOGREL BISULFATE
     Indication: PRODUCT USED FOR UNKNOWN INDICATION
     Dosage: UNK UNK, U
  25. FUROSEMIDE. [Concomitant]
     Active Substance: FUROSEMIDE
  26. ATENOLOL. [Concomitant]
     Active Substance: ATENOLOL
  27. PROBIOTICS [Concomitant]
     Active Substance: PROBIOTICS NOS
  28. CALCIUM CITRATE [Concomitant]
     Active Substance: CALCIUM CITRATE
  29. VITAMIN C [Concomitant]
     Active Substance: ASCORBIC ACID
  30. PREDNISONE. [Concomitant]
     Active Substance: PREDNISONE

REACTIONS (10)
  - Aortic aneurysm repair [Unknown]
  - Malaise [Recovered/Resolved]
  - Cough [Recovering/Resolving]
  - Laryngitis [Recovering/Resolving]
  - Muscle rupture [Unknown]
  - Pneumonia [Recovered/Resolved]
  - Staphylococcal infection [Recovered/Resolved]
  - Bronchitis [Recovering/Resolving]
  - Aortic aneurysm [Recovering/Resolving]
  - Increased viscosity of upper respiratory secretion [Recovering/Resolving]

NARRATIVE: CASE EVENT DATE: 201306
